FAERS Safety Report 4462377-0 (Version None)
Quarter: 2004Q3

REPORT INFORMATION
  Report Type: 
  Country: None (occurrence: None)
  Receive Date: 20040923
  Receipt Date: 20040914
  Transmission Date: 20050211
  Serious: Yes (Other)
  Sender: FDA-Public Use
  Company Number: FRWYE777824MAY04

PATIENT
  Age: 75 Year
  Sex: Female

DRUGS (4)
  1. CARDIOCOR                    (BISOPROLOL) [Suspect]
     Indication: CONGESTIVE CARDIOMYOPATHY
     Dosage: 2.5 MG 1X PER 1 DAY ORAL
     Route: 048
  2. AMLODIPINE [Concomitant]
  3. RAMIPRIL [Concomitant]
  4. CORVASAL (MOLSIDOMINE) [Concomitant]

REACTIONS (3)
  - CARDIAC FAILURE [None]
  - DISEASE PROGRESSION [None]
  - PULMONARY OEDEMA [None]
